FAERS Safety Report 8649638 (Version 2)
Quarter: 2012Q4

REPORT INFORMATION
  Report Type: 
  Country: BE (occurrence: BE)
  Receive Date: 20120705
  Receipt Date: 20120928
  Transmission Date: 20130627
  Serious: Yes (Hospitalization, Other)
  Sender: FDA-Public Use
  Company Number: BE-PFIZER INC-2012157457

PATIENT
  Age: 49 Year
  Sex: Male
  Weight: 68 kg

DRUGS (1)
  1. SOLU-MEDROL [Suspect]
     Indication: ASTHMA
     Dosage: 125 mg, single
     Route: 042
     Dates: start: 20120625, end: 20120625

REACTIONS (4)
  - Presyncope [Recovered/Resolved]
  - Syncope [Recovered/Resolved]
  - Shock [Recovered/Resolved]
  - Dyspnoea [Unknown]
